FAERS Safety Report 4821572-9 (Version None)
Quarter: 2005Q4

REPORT INFORMATION
  Report Type: 
  Country: None (occurrence: None)
  Receive Date: 20051103
  Receipt Date: 20051103
  Transmission Date: 20060501
  Serious: Yes (Other)
  Sender: FDA-Public Use
  Company Number: None

PATIENT
  Age: 8 Month
  Sex: Male

DRUGS (4)
  1. SYNAGIS [Suspect]
     Dosage: (R) U/O ASPECT THIGH IM
     Route: 030
  2. PEDIARIX [Concomitant]
  3. HEP B [Concomitant]
  4. PREVNAR [Concomitant]

REACTIONS (1)
  - OEDEMA PERIPHERAL [None]
